FAERS Safety Report 8476305-4 (Version None)
Quarter: 2012Q2

REPORT INFORMATION
  Report Type: 
  Country: None (occurrence: None)
  Receive Date: 20120622
  Receipt Date: 20120613
  Transmission Date: 20120825
  Serious: Yes (Other)
  Sender: FDA-Public Use
  Company Number: 2011SP040472

PATIENT
  Age: 1 Year
  Sex: Male

DRUGS (3)
  1. DIPROSPAN (BETAMETHASONE SODIUM PHOSPHATE/DIPROPIONATE) (BETAMETHASONE [Suspect]
     Indication: HERPES ZOSTER
     Dosage: 1 ML;IM
     Route: 030
     Dates: start: 20110101, end: 20110101
  2. DIPROSPAN (BETAMETHASONE SODIUM PHOSPHATE/DIPROPIONATE) (BETAMETHASONE [Suspect]
     Indication: OSTEOARTHRITIS
     Dosage: 1 ML;IM
     Route: 030
     Dates: start: 20110101, end: 20110101
  3. DIPROSPAN (BETAMETHASONE SODIUM PHOSPHATE/DIPROPIONATE) (BETAMETHASONE [Suspect]
     Indication: DERMATITIS CONTACT
     Dosage: 1 ML;IM
     Route: 030
     Dates: start: 20110101, end: 20110101

REACTIONS (1)
  - MUSCLE CONTRACTURE [None]
